FAERS Safety Report 4638440-8 (Version None)
Quarter: 2005Q2

REPORT INFORMATION
  Report Type: 
  Country: None (occurrence: None)
  Receive Date: 20050418
  Receipt Date: 20050322
  Transmission Date: 20051028
  Serious: Yes (Other)
  Sender: FDA-Public Use
  Company Number: 2005049688

PATIENT
  Age: 28 Year
  Sex: Female
  Weight: 104.3273 kg

DRUGS (2)
  1. DEPO-PROVERA [Suspect]
     Indication: MENSTRUAL DISCOMFORT
     Dosage: (EVERY THREE MONTHS, 1ST INJ)
     Dates: start: 20020101
  2. MULTIVITAMINS (ASCORBIC ACID, ERGOCALCIFEROL, FOLIC ACID, NICOTINAMIDE [Concomitant]

REACTIONS (3)
  - DEPRESSION [None]
  - PANIC ATTACK [None]
  - PERFORMANCE STATUS DECREASED [None]
